FAERS Safety Report 16596694 (Version 1)
Quarter: 2019Q3

REPORT INFORMATION
  Report Type: Spontaneous
  Country: IT (occurrence: IT)
  Receive Date: 20190719
  Receipt Date: 20190719
  Transmission Date: 20191004
  Serious: Yes (Other)
  Sender: FDA-Public Use
  Company Number: IT-ACCORD-139322

PATIENT
  Age: 62 Year
  Sex: Male

DRUGS (2)
  1. CYTARABINE ACCORD [Concomitant]
     Active Substance: CYTARABINE
     Dosage: STRENGTH: 100 MG/ML
     Route: 042
  2. CISPLATIN ACCORD HEALTHCARE [Suspect]
     Active Substance: CISPLATIN
     Indication: PRODUCT USED FOR UNKNOWN INDICATION
     Dosage: STRENGTH: 1 MG/ML CONCENTRATE FOR SOLUTION
     Route: 042

REACTIONS (5)
  - Alopecia [Recovered/Resolved with Sequelae]
  - Leukopenia [Recovered/Resolved with Sequelae]
  - Thrombocytopenia [Recovered/Resolved with Sequelae]
  - Agranulocytosis [Recovered/Resolved with Sequelae]
  - Anaemia [Recovered/Resolved with Sequelae]
